FAERS Safety Report 8020931-3 (Version None)
Quarter: 2011Q4

REPORT INFORMATION
  Report Type: 
  Country: None (occurrence: None)
  Receive Date: 20111228
  Receipt Date: 20111213
  Transmission Date: 20120403
  Serious: Yes (Hospitalization, Other)
  Sender: FDA-Public Use
  Company Number: 2011P1014982

PATIENT
  Age: 86 Year
  Sex: Female

DRUGS (9)
  1. AZULFIDINE [Concomitant]
  2. LOSARTAN POTASSIUM AND HYDROCHLOROTHIAZIDE [Concomitant]
  3. PEPCID [Suspect]
     Dosage: 10 MG; QD; PO
     Route: 048
  4. WARFARIN SODIUM [Concomitant]
  5. SITAGLIPTIN PHOSPHATE [Concomitant]
  6. ACTONEL [Concomitant]
  7. PREDNISOLONE [Concomitant]
  8. ACETAMINOPHEN [Concomitant]
  9. PRAVASTATIN [Concomitant]

REACTIONS (4)
  - MUSCULAR WEAKNESS [None]
  - RHABDOMYOLYSIS [None]
  - MYALGIA [None]
  - QUADRIPLEGIA [None]
